FAERS Safety Report 11681006 (Version 3)
Quarter: 2015Q4

REPORT INFORMATION
  Report Type: Spontaneous
  Country: US (occurrence: US)
  Receive Date: 20151027
  Receipt Date: 20151110
  Transmission Date: 20160304
  Serious: No
  Sender: FDA-Public Use
  Company Number: US-ELI_LILLY_AND_COMPANY-US201011004480

PATIENT
  Age: 58 Year
  Sex: Female

DRUGS (2)
  1. FORTEO [Suspect]
     Active Substance: TERIPARATIDE
     Dosage: 20 UG, QD
     Route: 065
  2. FORTEO [Suspect]
     Active Substance: TERIPARATIDE
     Indication: OSTEOPOROSIS
     Dosage: 20 UG, QD
     Route: 065
     Dates: start: 20101105

REACTIONS (6)
  - Drug dose omission [Unknown]
  - Muscle spasms [Unknown]
  - Vascular injury [Unknown]
  - Vitamin D decreased [Recovering/Resolving]
  - Injection site haemorrhage [Unknown]
  - Nausea [Unknown]

NARRATIVE: CASE EVENT DATE: 201011
